FAERS Safety Report 5202712-9 (Version None)
Quarter: 2006Q4

REPORT INFORMATION
  Report Type: 
  Country: None (occurrence: None)
  Receive Date: 20061016
  Receipt Date: 20060825
  Transmission Date: 20070319
  Serious: No
  Sender: FDA-Public Use
  Company Number: 2006SP003129

PATIENT
  Age: 68 Year
  Sex: Male
  Weight: 99.7913 kg

DRUGS (6)
  1. LUNESTA [Suspect]
     Indication: INSOMNIA
     Dosage: 2 MG;HS;ORAL;2 MG;HS;ORAL;2 MG;HS;ORAL
     Route: 048
     Dates: start: 20060801, end: 20060801
  2. LUNESTA [Suspect]
     Indication: INSOMNIA
     Dosage: 2 MG;HS;ORAL;2 MG;HS;ORAL;2 MG;HS;ORAL
     Route: 048
     Dates: start: 20060801, end: 20060801
  3. LUNESTA [Suspect]
     Indication: INSOMNIA
     Dosage: 2 MG;HS;ORAL;2 MG;HS;ORAL;2 MG;HS;ORAL
     Route: 048
     Dates: start: 20060809, end: 20060801
  4. ATENOLOL [Concomitant]
  5. EFFEXOR [Concomitant]
  6. ANTIHYPERTENSIVES [Concomitant]

REACTIONS (3)
  - DIZZINESS [None]
  - MIDDLE INSOMNIA [None]
  - PRURITUS [None]
